FAERS Safety Report 17409592 (Version 1)
Quarter: 2020Q1

REPORT INFORMATION
  Report Type: Spontaneous
  Country: US (occurrence: US)
  Receive Date: 20200212
  Receipt Date: 20200212
  Transmission Date: 20200409
  Serious: No
  Sender: FDA-Public Use
  Company Number: US-ASTRAZENECA-2020SE08768

PATIENT
  Sex: Female

DRUGS (4)
  1. NEXIUM [Suspect]
     Active Substance: ESOMEPRAZOLE MAGNESIUM
     Indication: GASTROOESOPHAGEAL REFLUX DISEASE
     Route: 048
  2. NEXIUM [Suspect]
     Active Substance: ESOMEPRAZOLE MAGNESIUM
     Indication: GASTROOESOPHAGEAL REFLUX DISEASE
     Route: 048
  3. PEPCID AC [Concomitant]
     Active Substance: FAMOTIDINE
  4. ESOMEPRAZOLE MAGNESIUM. [Suspect]
     Active Substance: ESOMEPRAZOLE MAGNESIUM
     Indication: GASTROOESOPHAGEAL REFLUX DISEASE
     Dosage: UNKNOWN UNKNOWN
     Route: 065

REACTIONS (17)
  - Mouth haemorrhage [Unknown]
  - Flatulence [Unknown]
  - Oral mucosa erosion [Unknown]
  - Chest pain [Not Recovered/Not Resolved]
  - Choking sensation [Unknown]
  - Gastrointestinal tract irritation [Unknown]
  - Tongue haemorrhage [Unknown]
  - Taste disorder [Unknown]
  - Product use issue [Unknown]
  - Back pain [Not Recovered/Not Resolved]
  - Hypophagia [Unknown]
  - Eructation [Unknown]
  - Drug ineffective [Unknown]
  - Gastrooesophageal reflux disease [Unknown]
  - Vitamin B12 decreased [Unknown]
  - Osteoarthritis [Unknown]
  - Abdominal distension [Unknown]
